FAERS Safety Report 9697514 (Version 1)
Quarter: 2013Q4

REPORT INFORMATION
  Report Type: Spontaneous
  Country: US (occurrence: None)
  Receive Date: 20131119
  Receipt Date: 20131119
  Transmission Date: 20140711
  Serious: Yes (Life-Threatening)
  Sender: FDA-Public Use
  Company Number: None

PATIENT
  Age: 72 Year
  Sex: Male
  Weight: 156.49 kg

DRUGS (11)
  1. FINASTERIDE [Suspect]
     Indication: OLIGURIA
     Dates: start: 20130515, end: 20130102
  2. 1 A DAY MULTI-VIT [Concomitant]
  3. FISH OIL [Concomitant]
  4. OSTEO BRFLEX [Concomitant]
  5. BAYER BABY ASPIRIN [Concomitant]
  6. STOOL SOFTER [Concomitant]
  7. ALKA-SELSER [Concomitant]
  8. PETO BISMO [Concomitant]
  9. BAG [Concomitant]
  10. BALM [Concomitant]
  11. KETOCONAZOLE [Concomitant]

REACTIONS (3)
  - Swelling [None]
  - Chest pain [None]
  - Renal failure [None]
